FAERS Safety Report 10130248 (Version 1)
Quarter: 2014Q2

REPORT INFORMATION
  Report Type: Spontaneous
  Country: US (occurrence: None)
  Receive Date: 20140425
  Receipt Date: 20140425
  Transmission Date: 20141212
  Serious: Yes (Hospitalization, Disabling, Other)
  Sender: FDA-Public Use
  Company Number: None

PATIENT
  Age: 28 Year
  Sex: Male
  Weight: 83.92 kg

DRUGS (1)
  1. OPTIMARK [Suspect]
     Indication: NUCLEAR MAGNETIC RESONANCE IMAGING BRAIN
     Dosage: SINGLE INJECTION SINGLE USE INTO THE VEIN
     Route: 042
     Dates: start: 20140304, end: 20140304

REACTIONS (9)
  - Contrast media allergy [None]
  - Renal pain [None]
  - Drug clearance decreased [None]
  - Pain [None]
  - Myalgia [None]
  - Arthralgia [None]
  - Bone pain [None]
  - Burning sensation [None]
  - Paraesthesia [None]
